FAERS Safety Report 12986219 (Version 1)
Quarter: 2016Q4

REPORT INFORMATION
  Report Type: Spontaneous
  Country: JP (occurrence: JP)
  Receive Date: 20161130
  Receipt Date: 20161130
  Transmission Date: 20170207
  Serious: Yes (Hospitalization, Other)
  Sender: FDA-Public Use
  Company Number: JP-TEVA-201611_00000015

PATIENT
  Age: 70 Year
  Sex: Female
  Weight: 59 kg

DRUGS (80)
  1. DEPAS [Concomitant]
     Active Substance: ETIZOLAM
     Indication: ANXIETY
     Route: 048
     Dates: end: 20160317
  2. TERPERAN [Concomitant]
     Active Substance: METOCLOPRAMIDE HYDROCHLORIDE
     Indication: PROPHYLAXIS OF NAUSEA AND VOMITING
  3. BFLUID [Concomitant]
     Active Substance: AMINO ACIDS\DEXTROSE\ELECTROLYTES NOS\VITAMINS
     Indication: DIARRHOEA
     Dosage: 1500 MILLIGRAM DAILY;
     Route: 042
     Dates: start: 20160411, end: 20160502
  4. XYLOCAINE [Concomitant]
     Active Substance: LIDOCAINE HYDROCHLORIDE
     Indication: ENDOSCOPY UPPER GASTROINTESTINAL TRACT
     Route: 048
     Dates: start: 20160411, end: 20160411
  5. POLARAMINE [Concomitant]
     Active Substance: DEXCHLORPHENIRAMINE MALEATE
     Indication: PROPHYLAXIS
  6. ZOSYN [Concomitant]
     Active Substance: PIPERACILLIN SODIUM\TAZOBACTAM SODIUM
     Indication: FEBRILE NEUTROPENIA
  7. URSODEOXYCHOLIC ACID [Concomitant]
     Active Substance: URSODIOL
     Indication: ALANINE AMINOTRANSFERASE INCREASED
  8. DIFLUPREDNATE [Concomitant]
     Active Substance: DIFLUPREDNATE
     Indication: RASH
     Route: 061
     Dates: start: 20160428, end: 20160509
  9. XYZAL [Concomitant]
     Active Substance: LEVOCETIRIZINE DIHYDROCHLORIDE
     Indication: RASH
     Route: 048
     Dates: start: 20160502, end: 20160616
  10. MICARDIS [Concomitant]
     Active Substance: TELMISARTAN
     Indication: HYPERTENSION
     Route: 048
     Dates: start: 20160531, end: 20160613
  11. GRAN [Concomitant]
     Active Substance: FILGRASTIM
     Indication: NEUTROPENIA
  12. AMLODIPINE [Concomitant]
     Active Substance: AMLODIPINE BESYLATE
     Indication: HYPERTENSION
     Route: 048
     Dates: end: 20160613
  13. CALONAL [Concomitant]
     Active Substance: ACETAMINOPHEN
     Indication: PLASMA CELL MYELOMA
     Route: 048
     Dates: start: 20160322, end: 20160607
  14. ANETOCAINE [Concomitant]
     Indication: ENDOSCOPY UPPER GASTROINTESTINAL TRACT
     Route: 050
     Dates: start: 20160323, end: 20160411
  15. LOXOPROFEN SODIUM [Concomitant]
     Active Substance: LOXOPROFEN SODIUM
     Indication: SPINAL COMPRESSION FRACTURE
     Route: 048
     Dates: start: 20160411, end: 20160413
  16. LOPERAMIDE [Concomitant]
     Active Substance: LOPERAMIDE
     Indication: DIARRHOEA
  17. BUSCOPAN [Concomitant]
     Active Substance: BUTYLSCOPOLAMINE BROMIDE
     Indication: DIARRHOEA
     Route: 042
     Dates: start: 20160411, end: 20160411
  18. ZOSYN [Concomitant]
     Active Substance: PIPERACILLIN SODIUM\TAZOBACTAM SODIUM
     Indication: PROPHYLAXIS
     Route: 042
     Dates: start: 20160412, end: 20160521
  19. SOLDEM 3A [Concomitant]
     Active Substance: CARBOHYDRATES\POTASSIUM CHLORIDE\SODIUM CHLORIDE\SODIUM LACTATE
     Indication: DIARRHOEA
     Route: 042
     Dates: start: 20160429, end: 20160429
  20. MIYA-BM [Concomitant]
     Active Substance: CLOSTRIDIUM BUTYRICUM SPORES STRAIN M-55
     Indication: ANTIDIARRHOEAL SUPPORTIVE CARE
     Route: 048
     Dates: start: 20160423
  21. ALFACALCIDOL [Concomitant]
     Active Substance: ALFACALCIDOL
     Route: 048
     Dates: start: 20160522
  22. LOCOID [Concomitant]
     Active Substance: HYDROCORTISONE BUTYRATE
     Indication: RASH
     Dosage: UNK
     Route: 061
     Dates: start: 20160527, end: 20160602
  23. CEFEPIME HYDROCHLORIDE. [Concomitant]
     Active Substance: CEFEPIME HYDROCHLORIDE
     Indication: PNEUMONIA
     Dosage: 2 GRAM DAILY;
     Route: 042
     Dates: start: 20160522, end: 20160526
  24. GRAN [Concomitant]
     Active Substance: FILGRASTIM
     Indication: PROPHYLAXIS
     Route: 042
     Dates: start: 20160404, end: 20160525
  25. GASTER [Concomitant]
     Active Substance: FAMOTIDINE
     Indication: GASTRITIS
     Route: 048
     Dates: end: 20160409
  26. SENNOSIDE [Concomitant]
     Active Substance: SENNOSIDES
     Indication: COLONOSCOPY
     Route: 048
     Dates: start: 20160322, end: 20160322
  27. ANETOCAINE [Concomitant]
     Indication: COLONOSCOPY
  28. BAKTAR [Concomitant]
     Active Substance: SULFAMETHOXAZOLE\TRIMETHOPRIM
     Indication: ANTIFUNGAL PROPHYLAXIS
     Route: 048
     Dates: start: 20160328, end: 20160409
  29. METHYCOBAL [Concomitant]
     Active Substance: METHYLCOBALAMIN
     Indication: VITAMIN B12 DECREASED
  30. PENTAZOCINE [Concomitant]
     Active Substance: PENTAZOCINE
     Indication: SPINAL COMPRESSION FRACTURE
     Route: 042
     Dates: start: 20160411, end: 20160413
  31. SOLDEM 1 [Concomitant]
     Active Substance: DEXTROSE\SODIUM CHLORIDE\SODIUM LACTATE
     Indication: OESOPHAGEAL RUPTURE
     Route: 042
     Dates: start: 20160409, end: 20160410
  32. CALCICOL [Concomitant]
     Active Substance: CALCIUM GLUCONATE
     Indication: HYPOCALCAEMIA
  33. TRAMAL [Concomitant]
     Active Substance: TRAMADOL
     Indication: SPINAL COMPRESSION FRACTURE
     Route: 048
     Dates: start: 20160411, end: 20160411
  34. VELCADE [Suspect]
     Active Substance: BORTEZOMIB
     Indication: PLASMA CELL MYELOMA
     Route: 058
     Dates: start: 20160328, end: 20160509
  35. METHYCOBAL [Concomitant]
     Active Substance: METHYLCOBALAMIN
     Indication: PROPHYLAXIS
     Route: 042
     Dates: start: 20160405, end: 20160405
  36. GLUCOSE [Concomitant]
     Active Substance: DEXTROSE
     Indication: OESOPHAGEAL RUPTURE
     Dosage: 80 ML DAILY;
     Route: 042
     Dates: start: 20160410, end: 20160410
  37. POLARAMINE [Concomitant]
     Active Substance: DEXCHLORPHENIRAMINE MALEATE
     Indication: TRANSFUSION REACTION
  38. CALCIUM LACTATE [Concomitant]
     Active Substance: CALCIUM LACTATE
     Indication: PROPHYLAXIS
     Dosage: 3 GRAM DAILY;
     Route: 048
     Dates: start: 20160413, end: 20160515
  39. LAC-B [Concomitant]
     Active Substance: BIFIDOBACTERIUM SPP.
     Indication: GASTRITIS
     Dosage: 3 GRAM DAILY;
     Route: 048
     Dates: start: 20160414
  40. GENINAX [Concomitant]
     Active Substance: GARENOXACIN MESYLATE
     Indication: PNEUMONIA
     Route: 048
     Dates: start: 20160516, end: 20160517
  41. CEFTRIAXONE SODIUM. [Concomitant]
     Active Substance: CEFTRIAXONE SODIUM
     Indication: PNEUMONIA
     Route: 042
     Dates: start: 20160516, end: 20160516
  42. K-SUPPLY [Concomitant]
     Active Substance: POTASSIUM CHLORIDE
     Indication: HYPOKALAEMIA
     Route: 065
     Dates: start: 20160531, end: 20160621
  43. MELPHALAN [Suspect]
     Active Substance: MELPHALAN
     Indication: PLASMA CELL MYELOMA
     Route: 048
     Dates: start: 20160328, end: 20160512
  44. ZOLPIDEM TARTRATE. [Concomitant]
     Active Substance: ZOLPIDEM TARTRATE
     Indication: INSOMNIA
     Route: 048
     Dates: end: 20160515
  45. MIDAZOLAM [Concomitant]
     Active Substance: MIDAZOLAM\MIDAZOLAM HYDROCHLORIDE
     Indication: COLONOSCOPY
     Route: 042
     Dates: start: 20160323, end: 20160323
  46. NIFLEC [Concomitant]
     Active Substance: BICARBONATE ION\POLYETHYLENE GLYCOLS\POTASSIUM CATION\SODIUM CHLORIDE\SODIUM SULFATE ANHYDROUS
     Indication: COLONOSCOPY
     Route: 048
     Dates: start: 20160323, end: 20160323
  47. BFLUID [Concomitant]
     Active Substance: AMINO ACIDS\DEXTROSE\ELECTROLYTES NOS\VITAMINS
     Indication: PROPHYLAXIS AGAINST DEHYDRATION
  48. SAXIZON [Concomitant]
     Active Substance: HYDROCORTISONE SODIUM SUCCINATE
     Indication: RASH
  49. POLARAMINE [Concomitant]
     Active Substance: DEXCHLORPHENIRAMINE MALEATE
     Indication: RASH
     Route: 042
     Dates: start: 20160415, end: 20160530
  50. ALFACALCIDOL [Concomitant]
     Active Substance: ALFACALCIDOL
     Indication: HYPOCALCAEMIA
     Route: 048
     Dates: start: 20160521, end: 20160522
  51. MAGMITT [Concomitant]
     Active Substance: MAGNESIUM OXIDE
     Indication: CONSTIPATION PROPHYLAXIS
     Dosage: 1500 MILLIGRAM DAILY;
     Route: 048
     Dates: start: 20160329, end: 20160404
  52. ATARAX [Concomitant]
     Active Substance: HYDROXYZINE\HYDROXYZINE HYDROCHLORIDE
     Indication: SPINAL COMPRESSION FRACTURE
     Route: 042
     Dates: start: 20160411, end: 20160413
  53. LOPERAMIDE [Concomitant]
     Active Substance: LOPERAMIDE
     Indication: PROPHYLAXIS
     Route: 048
     Dates: start: 20160409, end: 20160503
  54. HEPAFLUSH [Concomitant]
     Active Substance: HEPARIN SODIUM
     Indication: COAGULOPATHY
     Route: 042
     Dates: start: 20160409, end: 20160409
  55. PREDNISOLONE. [Suspect]
     Active Substance: PREDNISOLONE
     Indication: PLASMA CELL MYELOMA
     Route: 048
     Dates: start: 20160328, end: 20160512
  56. DIQUAS [Concomitant]
     Active Substance: DIQUAFOSOL TETRASODIUM
     Indication: DRY EYE
     Route: 047
  57. ETIZOLAM [Concomitant]
     Active Substance: ETIZOLAM
     Indication: ANXIETY
     Route: 048
     Dates: start: 20160328
  58. BAROS ANTIFOAMING [Concomitant]
     Indication: ENDOSCOPY UPPER GASTROINTESTINAL TRACT
     Route: 048
     Dates: start: 20160323, end: 20160411
  59. TERPERAN [Concomitant]
     Active Substance: METOCLOPRAMIDE HYDROCHLORIDE
     Indication: VOMITING
     Dosage: 15 MILLIGRAM DAILY;
     Route: 048
     Dates: start: 20160329, end: 20160402
  60. ZOMETA [Concomitant]
     Active Substance: ZOLEDRONIC ACID
     Indication: PLASMA CELL MYELOMA
     Route: 042
     Dates: start: 20160405, end: 20160405
  61. OMEPRAZOLE. [Concomitant]
     Active Substance: OMEPRAZOLE
     Indication: OESOPHAGEAL RUPTURE
     Dosage: 40 MILLIGRAM DAILY;
     Route: 042
     Dates: start: 20160409, end: 20160411
  62. CALCICOL [Concomitant]
     Active Substance: CALCIUM GLUCONATE
     Indication: PROPHYLAXIS
     Route: 042
     Dates: start: 20160411, end: 20160520
  63. ARCRANE [Concomitant]
     Indication: OESOPHAGEAL RUPTURE
     Dosage: 15 ML DAILY;
     Route: 048
     Dates: start: 20160409, end: 20160411
  64. SAXIZON [Concomitant]
     Active Substance: HYDROCORTISONE SODIUM SUCCINATE
     Indication: TRANSFUSION REACTION
  65. ZOSYN [Concomitant]
     Active Substance: PIPERACILLIN SODIUM\TAZOBACTAM SODIUM
     Indication: PYREXIA
  66. URSODEOXYCHOLIC ACID [Concomitant]
     Active Substance: URSODIOL
     Indication: ASPARTATE AMINOTRANSFERASE INCREASED
     Dosage: 600 MILLIGRAM DAILY;
     Route: 048
     Dates: start: 20160413, end: 20160502
  67. PREDONINE [Concomitant]
     Active Substance: PREDNISOLONE\PREDNISOLONE ACETATE\PREDNISOLONE SODIUM SUCCINATE
     Indication: RASH
     Route: 048
     Dates: start: 20160502, end: 20160508
  68. FUROSEMIDE. [Concomitant]
     Active Substance: FUROSEMIDE
     Indication: GENERALISED OEDEMA
     Route: 042
     Dates: start: 20160522, end: 20160530
  69. ALBUMIN HUMAN [Concomitant]
     Active Substance: ALBUMIN HUMAN
     Indication: HYPOALBUMINAEMIA
     Route: 042
     Dates: start: 20160526, end: 20160526
  70. LOXONIN [Concomitant]
     Active Substance: LOXOPROFEN SODIUM
     Indication: PLASMA CELL MYELOMA
     Route: 061
     Dates: start: 20160322
  71. IRBESARTAN. [Concomitant]
     Active Substance: IRBESARTAN
     Indication: HYPERTENSION
     Route: 048
     Dates: end: 20160515
  72. CALONAL [Concomitant]
     Active Substance: ACETAMINOPHEN
     Indication: PNEUMONIA
  73. BAROS ANTIFOAMING [Concomitant]
     Indication: COLONOSCOPY
  74. ACICLOVIR [Concomitant]
     Active Substance: ACYCLOVIR
     Indication: PROPHYLAXIS
     Route: 048
     Dates: start: 20160328, end: 20160409
  75. RINDERON VG [Concomitant]
     Active Substance: BETAMETHASONE VALERATE\GENTAMICIN SULFATE
     Indication: INJECTION SITE ERYTHEMA
     Route: 061
     Dates: start: 20160409, end: 20160427
  76. SOLYUGEN F [Concomitant]
     Indication: OESOPHAGEAL RUPTURE
     Route: 042
     Dates: start: 20160409, end: 20160409
  77. SAXIZON [Concomitant]
     Active Substance: HYDROCORTISONE SODIUM SUCCINATE
     Indication: PYREXIA
     Route: 042
     Dates: start: 20160301, end: 20160530
  78. SAXIZON [Concomitant]
     Active Substance: HYDROCORTISONE SODIUM SUCCINATE
     Indication: PROPHYLAXIS
  79. FAMOTIDINE. [Concomitant]
     Active Substance: FAMOTIDINE
     Indication: GASTRITIS
     Route: 048
     Dates: start: 20160412
  80. FEBURIC [Concomitant]
     Active Substance: FEBUXOSTAT
     Indication: HYPERURICAEMIA
     Route: 048
     Dates: start: 20160428, end: 20160503

REACTIONS (21)
  - Alanine aminotransferase increased [Unknown]
  - Relapsing fever [Unknown]
  - Oesophageal rupture [Recovered/Resolved]
  - Hypocalcaemia [Unknown]
  - Injection site erythema [Unknown]
  - Aspartate aminotransferase increased [Unknown]
  - Pleural effusion [Unknown]
  - Cardiac failure [Recovered/Resolved]
  - Diarrhoea [Unknown]
  - Malaise [Recovered/Resolved]
  - Hypoalbuminaemia [Unknown]
  - Neutrophil count decreased [Unknown]
  - Febrile neutropenia [Unknown]
  - Hypokalaemia [Unknown]
  - Rash generalised [Unknown]
  - Pneumonia [Unknown]
  - Rash [Unknown]
  - Spinal compression fracture [Recovered/Resolved]
  - Oedema peripheral [Unknown]
  - Generalised oedema [Unknown]
  - Vomiting [Unknown]

NARRATIVE: CASE EVENT DATE: 20160401
